FAERS Safety Report 4358087-0 (Version None)
Quarter: 2004Q2

REPORT INFORMATION
  Report Type: 
  Country: None (occurrence: None)
  Receive Date: 20040513
  Receipt Date: 20040429
  Transmission Date: 20050107
  Serious: Yes (Hospitalization, Other)
  Sender: FDA-Public Use
  Company Number: A-US2004-05972

PATIENT
  Age: 79 Year
  Sex: Female
  Weight: 50.8 kg

DRUGS (19)
  1. TRACLEER [Suspect]
     Indication: PULMONARY HYPERTENSION
     Dosage: SEE IMAGE
     Route: 048
     Dates: start: 20031125, end: 20040101
  2. TRACLEER [Suspect]
     Indication: PULMONARY HYPERTENSION
     Dosage: SEE IMAGE
     Route: 048
     Dates: end: 20040425
  3. TRACLEER [Suspect]
     Indication: PULMONARY HYPERTENSION
     Dosage: SEE IMAGE
     Route: 048
     Dates: start: 20031001
  4. VIOXX [Suspect]
     Dosage: 25 MG, QD
  5. COUMADIN [Concomitant]
  6. CARDIZEM [Concomitant]
  7. FOSAMAX [Concomitant]
  8. ZANTAC [Concomitant]
  9. SYNTHROID [Concomitant]
  10. DIOVAN ^CIBA-GEIGY^ (VALSARTAN) [Concomitant]
  11. NORVASC [Concomitant]
  12. PREDNISONE [Concomitant]
  13. ASPIRIN [Concomitant]
  14. LOPRESSOR [Concomitant]
  15. DIGOXIN [Concomitant]
  16. PREMARIN [Concomitant]
  17. REGLAN [Concomitant]
  18. LASIX [Concomitant]
  19. NITROGLYCERIN TRANSDERMAL SYSTEM (GLYCERYL TRINITRATE) [Concomitant]

REACTIONS (9)
  - CHOLANGITIS [None]
  - CHOLELITHIASIS [None]
  - CHROMATURIA [None]
  - DIARRHOEA [None]
  - GASTRIC ULCER [None]
  - NASOPHARYNGITIS [None]
  - PHARYNGOLARYNGEAL PAIN [None]
  - PRURITUS [None]
  - PYREXIA [None]
